FAERS Safety Report 10505801 (Version 2)
Quarter: 2014Q4

REPORT INFORMATION
  Report Type: Spontaneous
  Country: BR (occurrence: BR)
  Receive Date: 20141008
  Receipt Date: 20141218
  Transmission Date: 20150528
  Serious: Yes (Hospitalization)
  Sender: FDA-Public Use
  Company Number: BR-ASTRAZENECA-2014SE74305

PATIENT
  Age: 57 Year
  Sex: Male
  Weight: 73 kg

DRUGS (8)
  1. CLOPIDOGREL [Concomitant]
     Active Substance: CLOPIDOGREL BISULFATE
     Indication: INFARCTION
     Route: 048
     Dates: start: 20140423
  2. ASA [Concomitant]
     Active Substance: ASPIRIN
     Indication: INFARCTION
     Route: 048
     Dates: start: 20140423
  3. SIMVASTATIN. [Concomitant]
     Active Substance: SIMVASTATIN
     Indication: INFARCTION
     Route: 048
     Dates: start: 20140423
  4. RIVOTRIL [Concomitant]
     Active Substance: CLONAZEPAM
     Indication: INSOMNIA
     Route: 048
  5. OMEPRAZOLE. [Suspect]
     Active Substance: OMEPRAZOLE
     Indication: PROPHYLAXIS AGAINST GASTROINTESTINAL ULCER
     Route: 048
     Dates: start: 2006
  6. SELOZOK [Suspect]
     Active Substance: METOPROLOL SUCCINATE
     Indication: INFARCTION
     Route: 048
     Dates: start: 20140423
  7. RIVOTRIL [Concomitant]
     Active Substance: CLONAZEPAM
     Indication: ANXIETY
     Route: 048
  8. GLIFAGE [Suspect]
     Active Substance: METFORMIN HYDROCHLORIDE
     Indication: TYPE 2 DIABETES MELLITUS
     Route: 048
     Dates: start: 1994

REACTIONS (9)
  - Myocardial infarction [Recovered/Resolved]
  - Intentional product misuse [Recovered/Resolved]
  - Erectile dysfunction [Not Recovered/Not Resolved]
  - Heart rate decreased [Not Recovered/Not Resolved]
  - Weight decreased [Unknown]
  - Fatigue [Not Recovered/Not Resolved]
  - Adverse event [Not Recovered/Not Resolved]
  - Nausea [Recovered/Resolved]
  - Abdominal discomfort [Recovered/Resolved]

NARRATIVE: CASE EVENT DATE: 2006
